FAERS Safety Report 8763717 (Version 2)
Quarter: 2012Q4

REPORT INFORMATION
  Report Type: 
  Country: US (occurrence: US)
  Receive Date: 20120828
  Receipt Date: 20120914
  Transmission Date: 20130627
  Serious: Yes (Other)
  Sender: FDA-Public Use
  Company Number: US-VERTEX PHARMACEUTICAL INC.-AE-2012-011447

PATIENT

DRUGS (5)
  1. INCIVEK [Suspect]
     Indication: HEPATITIS C
     Dosage: 750 mg, UNK
     Route: 048
     Dates: start: 20120608
  2. COPEGUS [Concomitant]
     Indication: HEPATITIS C
     Dosage: 6 DF, bid
     Route: 048
     Dates: start: 20120608, end: 20120716
  3. COPEGUS [Concomitant]
     Dosage: 3 DF, qd
     Route: 048
     Dates: start: 20120716
  4. PEGASYS [Concomitant]
     Indication: HEPATITIS C
     Dosage: 180 UNK, UNK
     Route: 058
     Dates: start: 20120608, end: 20120716
  5. PEGASYS [Concomitant]
     Dosage: 90 UNK, UNK
     Route: 058
     Dates: start: 20120716

REACTIONS (11)
  - Rash generalised [Not Recovered/Not Resolved]
  - Platelet count decreased [Unknown]
  - Dizziness [Not Recovered/Not Resolved]
  - Dysuria [Not Recovered/Not Resolved]
  - Dyspnoea [Not Recovered/Not Resolved]
  - Eye swelling [Not Recovered/Not Resolved]
  - Eye discharge [Unknown]
  - Asthenia [Not Recovered/Not Resolved]
  - Swelling face [Not Recovered/Not Resolved]
  - Skin exfoliation [None]
  - Haemoglobin decreased [Not Recovered/Not Resolved]
